FAERS Safety Report 6258480-5 (Version None)
Quarter: 2009Q3

REPORT INFORMATION
  Report Type: 
  Country: None (occurrence: None)
  Receive Date: 20090707
  Receipt Date: 20090602
  Transmission Date: 20100115
  Serious: Yes (Hospitalization)
  Sender: FDA-Public Use
  Company Number: PL-PFIZER INC-2009217064

PATIENT
  Age: 55 Year

DRUGS (9)
  1. METHYLPREDNISOLONE AND METHYLPREDNISOLONE ACETATE AND METHYLPREDNISOLO [Suspect]
     Indication: TINNITUS
     Dosage: UNK
     Route: 042
     Dates: start: 20050501
  2. PREDNISONE [Concomitant]
  3. ACENOCOUMAROL [Concomitant]
  4. CHLOROCHIN [Concomitant]
  5. PENTOXIFYLLINE [Concomitant]
  6. OMEPRAZOLE [Concomitant]
  7. POTASSIUM [Concomitant]
  8. MAGNESIUM [Concomitant]
  9. FOLIC ACID [Concomitant]

REACTIONS (3)
  - BRONCHITIS VIRAL [None]
  - DRUG INEFFECTIVE [None]
  - SYSTEMIC LUPUS ERYTHEMATOSUS [None]
